FAERS Safety Report 5869714-0 (Version None)
Quarter: 2008Q3

REPORT INFORMATION
  Report Type: 
  Country: None (occurrence: None)
  Receive Date: 20080904
  Receipt Date: 20080827
  Transmission Date: 20090109
  Serious: Yes (Other)
  Sender: FDA-Public Use
  Company Number: DE-ALLERGAN-0811024US

PATIENT
  Sex: Female

DRUGS (8)
  1. BOTOX [Suspect]
     Indication: TORTICOLLIS
     Dosage: UNK, SINGLE
     Route: 030
  2. BOTOX [Suspect]
     Indication: HEAD TITUBATION
     Dosage: TEST INJECTION (# 2)
     Route: 030
  3. XEOMIN [Suspect]
     Indication: TORTICOLLIS
     Dosage: UNK, SINGLE
     Route: 030
  4. XEOMIN [Suspect]
     Indication: HEAD TITUBATION
  5. DYSPORT [Concomitant]
     Indication: TORTICOLLIS
     Dosage: UNK, SINGLE
     Route: 030
  6. DYSPORT [Concomitant]
     Indication: HEAD TITUBATION
  7. XEOMIN [Concomitant]
     Dosage: UNK, SINGLE
     Route: 030
  8. XEOMIN [Concomitant]

REACTIONS (12)
  - DYSPHAGIA [None]
  - DYSPHONIA [None]
  - HYPERREFLEXIA [None]
  - HYPERTENSION [None]
  - HYPERTHYROIDISM [None]
  - INCREASED BRONCHIAL SECRETION [None]
  - LOCAL SWELLING [None]
  - MYALGIA [None]
  - MYOSITIS [None]
  - NECK PAIN [None]
  - RASH [None]
  - TACHYCARDIA [None]
